FAERS Safety Report 24162561 (Version 4)
Quarter: 2025Q1

REPORT INFORMATION
  Report Type: Report from Study
  Country: US (occurrence: US)
  Receive Date: 20240801
  Receipt Date: 20250227
  Transmission Date: 20250409
  Serious: Yes (Hospitalization, Other)
  Sender: OTSUKA
  Company Number: US-OTSUKA-2023_025272

PATIENT
  Sex: Male

DRUGS (1)
  1. TOLVAPTAN [Suspect]
     Active Substance: TOLVAPTAN
     Indication: Congenital cystic kidney disease
     Route: 065
     Dates: start: 20220422

REACTIONS (11)
  - Gastric infection [Unknown]
  - Cataract [Recovered/Resolved]
  - Cataract operation [Recovered/Resolved]
  - Cataract operation complication [Recovered/Resolved]
  - Limb injury [Unknown]
  - Diarrhoea [Unknown]
  - Muscle strain [Unknown]
  - Sinus congestion [Unknown]
  - Gastrointestinal disorder [Unknown]
  - Polydipsia [Unknown]
  - Treatment noncompliance [Unknown]

NARRATIVE: CASE EVENT DATE: 20230925
